FAERS Safety Report 4277418-3 (Version None)
Quarter: 2004Q1

REPORT INFORMATION
  Report Type: 
  Country: None (occurrence: None)
  Receive Date: 20040122
  Receipt Date: 20031208
  Transmission Date: 20041129
  Serious: Yes (Other)
  Sender: FDA-Public Use
  Company Number: AU-GLAXOSMITHKLINE-B0317324A

PATIENT
  Age: 33 Year
  Sex: Female

DRUGS (2)
  1. ZYBAN [Suspect]
     Route: 048
     Dates: start: 20031119, end: 20031129
  2. NO CONCURRENT MEDICATION [Concomitant]

REACTIONS (5)
  - AMNESIA [None]
  - GRAND MAL CONVULSION [None]
  - LOSS OF CONSCIOUSNESS [None]
  - TONGUE BITING [None]
  - URINARY INCONTINENCE [None]
